FAERS Safety Report 9398705 (Version 1)
Quarter: 2013Q3

REPORT INFORMATION
  Report Type: Spontaneous
  Country: CN (occurrence: CN)
  Receive Date: 20130712
  Receipt Date: 20130712
  Transmission Date: 20140515
  Serious: Yes (Other)
  Sender: FDA-Public Use
  Company Number: CN-BAXTER-2013BAX026370

PATIENT
  Age: 25 Year
  Sex: Male
  Weight: 70 kg

DRUGS (4)
  1. 0.9% SODIUM CHLORIDE INJECTION [Suspect]
     Indication: BRONCHOPNEUMONIA
     Route: 041
     Dates: start: 20120317, end: 20120317
  2. 0.9% SODIUM CHLORIDE INJECTION [Suspect]
     Indication: INFLAMMATION
  3. CEFTRIAXONE SODIUM [Suspect]
     Indication: BRONCHOPNEUMONIA
     Route: 041
     Dates: start: 20120317, end: 20120317
  4. CEFTRIAXONE SODIUM [Suspect]
     Indication: INFLAMMATION

REACTIONS (1)
  - Anaphylactic reaction [Recovered/Resolved]
